FAERS Safety Report 9079547 (Version 1)
Quarter: 2013Q1

REPORT INFORMATION
  Report Type: Report from Study
  Country: US (occurrence: US)
  Receive Date: 20130130
  Receipt Date: 20130130
  Transmission Date: 20140127
  Serious: No
  Sender: FDA-Public Use
  Company Number: US-ABBOTT-12P-163-0960057-00

PATIENT
  Age: 63 Year
  Sex: Female

DRUGS (4)
  1. HUMIRA 40 MG/0.8 ML PEN [Suspect]
     Indication: PSORIASIS
     Dates: start: 20120614
  2. UNKNOWN BLOOD PRESSURE MEDICATION [Concomitant]
     Indication: BLOOD PRESSURE INCREASED
     Dosage: 1 PILL DAILY
  3. CITALOPRAM [Concomitant]
     Indication: DEPRESSION
     Dosage: 1 PILL NIGHTLY
  4. PREVACID [Concomitant]
     Indication: GASTROOESOPHAGEAL REFLUX DISEASE
     Dosage: 1 PILL DAILY

REACTIONS (3)
  - Drug effect decreased [Not Recovered/Not Resolved]
  - Rash macular [Not Recovered/Not Resolved]
  - Oedema peripheral [Not Recovered/Not Resolved]
